FAERS Safety Report 4686383-6 (Version None)
Quarter: 2005Q2

REPORT INFORMATION
  Report Type: 
  Country: None (occurrence: None)
  Receive Date: 20050606
  Receipt Date: 20050527
  Transmission Date: 20051028
  Serious: Yes (Death, Hospitalization, Other)
  Sender: FDA-Public Use
  Company Number: 2005076121

PATIENT
  Age: 67 Year
  Sex: Male

DRUGS (8)
  1. TORVAST (ATORVASTATIN) [Suspect]
     Indication: ILL-DEFINED DISORDER
     Dosage: 20 MG (20 MG, 1 IN 1 D) ORAL
     Route: 048
     Dates: start: 20030101, end: 20050509
  2. ALL OTHER THERAPEUTIC PRODUCTS [Concomitant]
  3. CITALOPRAM [Concomitant]
  4. HALDOL [Concomitant]
  5. TEGRETOL [Concomitant]
  6. LAMICTAL [Concomitant]
  7. CLONAZEPAM [Concomitant]
  8. GARDENALE (PHENOBARBITAL SODIUM) [Concomitant]

REACTIONS (11)
  - CHEST INJURY [None]
  - CHROMATURIA [None]
  - DYSPNOEA [None]
  - EPILEPSY [None]
  - HAEMOGLOBIN DECREASED [None]
  - HEPATITIS FULMINANT [None]
  - HEPATORENAL SYNDROME [None]
  - PNEUMONIA [None]
  - RED BLOOD CELLS URINE POSITIVE [None]
  - RHABDOMYOLYSIS [None]
  - RIB FRACTURE [None]
